FAERS Safety Report 4592611-8 (Version None)
Quarter: 2005Q1

REPORT INFORMATION
  Report Type: 
  Country: None (occurrence: None)
  Receive Date: 20050222
  Receipt Date: 20050207
  Transmission Date: 20050727
  Serious: Yes (Hospitalization)
  Sender: FDA-Public Use
  Company Number: CERZ-10739

PATIENT
  Age: 34 Year
  Sex: Female
  Weight: 54 kg

DRUGS (3)
  1. CEREZYME [Suspect]
     Indication: GAUCHER'S DISEASE
     Dosage: 60 U/KG Q2WKS IV
     Route: 042
  2. CEREZYME [Suspect]
     Indication: GAUCHER'S DISEASE
     Dosage: 1800 UNITS Q3WKS IV
     Route: 042
     Dates: start: 20040301, end: 20040901
  3. CEREZYME [Suspect]
     Indication: GAUCHER'S DISEASE
     Dosage: 1800 UNITS Q2WKS IV
     Route: 042
     Dates: start: 20000101, end: 20040301

REACTIONS (37)
  - ACTIVITIES OF DAILY LIVING IMPAIRED [None]
  - ALPHA 1 GLOBULIN INCREASED [None]
  - ALPHA 2 GLOBULIN INCREASED [None]
  - ANGIOTENSIN CONVERTING ENZYME INCREASED [None]
  - ANTIPHOSPHOLIPID ANTIBODIES POSITIVE [None]
  - AUTOIMMUNE DISORDER [None]
  - BIOPSY BONE MARROW ABNORMAL [None]
  - BLOOD ALKALINE PHOSPHATASE INCREASED [None]
  - BLOOD IMMUNOGLOBULIN G INCREASED [None]
  - BLOOD IMMUNOGLOBULIN M INCREASED [None]
  - CD8 LYMPHOCYTES DECREASED [None]
  - COMPLEMENT FACTOR INCREASED [None]
  - CYTOLYTIC HEPATITIS [None]
  - DNA ANTIBODY POSITIVE [None]
  - DRUG INEFFECTIVE [None]
  - GAMMA-GLUTAMYLTRANSFERASE INCREASED [None]
  - GASTRITIS ATROPHIC [None]
  - GENERAL PHYSICAL HEALTH DETERIORATION [None]
  - GRANULOMA [None]
  - HAEMOGLOBIN DECREASED [None]
  - IMMUNOGLOBULINS ABNORMAL [None]
  - INFLAMMATION [None]
  - LYMPHOCYTE COUNT DECREASED [None]
  - LYMPHOCYTOSIS [None]
  - PLATELET COUNT INCREASED [None]
  - POLYARTHRITIS [None]
  - REFLUX GASTRITIS [None]
  - SALIVARY GLAND MASS [None]
  - SCAN ABNORMAL [None]
  - SCINTIGRAPHY [None]
  - SIALOADENITIS [None]
  - SICCA SYNDROME [None]
  - SYNOVIAL FLUID GLUCOSE PRESENT [None]
  - SYNOVIAL FLUID PROTEIN PRESENT [None]
  - SYNOVIAL FLUID WHITE BLOOD CELLS POSITIVE [None]
  - SYSTEMIC LUPUS ERYTHEMATOSUS [None]
  - WEIGHT DECREASED [None]
